FAERS Safety Report 5629539-8 (Version None)
Quarter: 2008Q1

REPORT INFORMATION
  Report Type: 
  Country: None (occurrence: None)
  Receive Date: 20080214
  Receipt Date: 20080214
  Transmission Date: 20080703
  Serious: Yes (Other)
  Sender: FDA-Public Use
  Company Number: None

PATIENT
  Sex: Female
  Weight: 50.8029 kg

DRUGS (2)
  1. LINDANE [Suspect]
     Indication: ACARODERMATITIS
     Dosage: 1 APPLICATION
     Dates: start: 20071107
  2. LINDANE [Suspect]
     Indication: DERMATITIS
     Dosage: 1 APPLICATION
     Dates: start: 20071107

REACTIONS (3)
  - DERMATITIS [None]
  - HYPOAESTHESIA [None]
  - PARAESTHESIA [None]
